FAERS Safety Report 6327585-2 (Version None)
Quarter: 2009Q3

REPORT INFORMATION
  Report Type: 
  Country: None (occurrence: None)
  Receive Date: 20090825
  Receipt Date: 20090813
  Transmission Date: 20100115
  Serious: Yes (Hospitalization, Other)
  Sender: FDA-Public Use
  Company Number: US-PFIZER INC-2009255233

PATIENT
  Sex: Female

DRUGS (1)
  1. GEODON [Suspect]
     Dosage: 160 MG, UNK

REACTIONS (4)
  - DRUG EFFECT DECREASED [None]
  - ELECTROCARDIOGRAM QT INTERVAL ABNORMAL [None]
  - SEDATION [None]
  - SYNCOPE [None]
